FAERS Safety Report 6614807-3 (Version None)
Quarter: 2010Q1

REPORT INFORMATION
  Report Type: 
  Country: None (occurrence: None)
  Receive Date: 20100305
  Receipt Date: 20100218
  Transmission Date: 20100710
  Serious: Yes (Life-Threatening)
  Sender: FDA-Public Use
  Company Number: GB-RANBAXY-2010RR-31522

PATIENT

DRUGS (1)
  1. CODEINE SULFATE [Suspect]
     Route: 065

REACTIONS (1)
  - ANAPHYLACTIC REACTION [None]
